FAERS Safety Report 22266090 (Version 3)
Quarter: 2023Q2

REPORT INFORMATION
  Report Type: Spontaneous
  Country: US (occurrence: US)
  Receive Date: 20230428
  Receipt Date: 20230623
  Transmission Date: 20230722
  Serious: Yes (Hospitalization)
  Sender: FDA-Public Use
  Company Number: US-002147023-NVSC2023US093002

PATIENT
  Age: 81 Year
  Sex: Male

DRUGS (4)
  1. PENICILLIN G SODIUM [Suspect]
     Active Substance: PENICILLIN G SODIUM
     Indication: Bacteraemia
     Dosage: UNK
     Route: 065
  2. RELUGOLIX [Suspect]
     Active Substance: RELUGOLIX
     Indication: Neoplasm prostate
     Dosage: 360 MG (ONE TIME DOSE)
     Route: 048
     Dates: start: 20211105, end: 20211105
  3. RELUGOLIX [Suspect]
     Active Substance: RELUGOLIX
     Dosage: 120 MG, QD
     Route: 048
     Dates: start: 20211106
  4. XTANDI [Concomitant]
     Active Substance: ENZALUTAMIDE
     Indication: Prostate cancer
     Dosage: 80 MG
     Route: 065
     Dates: start: 20230106, end: 202304

REACTIONS (5)
  - Bacteraemia [Unknown]
  - Urinary retention [Unknown]
  - Drug hypersensitivity [Unknown]
  - Fatigue [Unknown]
  - Asthenia [Unknown]

NARRATIVE: CASE EVENT DATE: 20230401
